FAERS Safety Report 17031143 (Version 1)
Quarter: 2019Q4

REPORT INFORMATION
  Report Type: Spontaneous
  Country: US (occurrence: US)
  Receive Date: 20191011
  Receipt Date: 20191011
  Transmission Date: 20200122
  Serious: Yes (Hospitalization)
  Sender: FDA-Public Use
  Company Number: None

PATIENT
  Age: 5 Year
  Sex: Female
  Weight: 21.5 kg

DRUGS (5)
  1. DEXAMETHASONE. [Suspect]
     Active Substance: DEXAMETHASONE
     Dates: end: 20191009
  2. ONCASPAR [Suspect]
     Active Substance: PEGASPARGASE
     Dates: end: 20190922
  3. METHOTREXATE. [Suspect]
     Active Substance: METHOTREXATE
     Dates: end: 20190917
  4. VINCRISTINE [Suspect]
     Active Substance: VINCRISTINE
     Dates: end: 20191003
  5. CYTARABINE. [Suspect]
     Active Substance: CYTARABINE
     Dates: end: 20190917

REACTIONS (4)
  - Neutropenia [None]
  - Pyrexia [None]
  - Abdominal pain lower [None]
  - Tachycardia [None]

NARRATIVE: CASE EVENT DATE: 20191009
